FAERS Safety Report 25767967 (Version 1)
Quarter: 2025Q3

REPORT INFORMATION
  Report Type: Spontaneous
  Country: US (occurrence: US)
  Receive Date: 20250905
  Receipt Date: 20250905
  Transmission Date: 20251021
  Serious: No
  Sender: DOMPE FARMACEUTICI
  Company Number: US-FARMAPROD-202505-1697

PATIENT
  Sex: Female

DRUGS (1)
  1. OXERVATE [Suspect]
     Active Substance: CENEGERMIN-BKBJ
     Indication: Product used for unknown indication
     Route: 047

REACTIONS (8)
  - Eye pain [Unknown]
  - Foreign body sensation in eyes [Unknown]
  - Dry eye [Unknown]
  - Lacrimation increased [Unknown]
  - Ocular hyperaemia [Unknown]
  - Eye inflammation [Unknown]
  - Photophobia [Unknown]
  - Corneal deposits [Unknown]
